FAERS Safety Report 10257186 (Version 1)
Quarter: 2014Q2

REPORT INFORMATION
  Report Type: Spontaneous
  Country: US (occurrence: None)
  Receive Date: 20140620
  Receipt Date: 20140620
  Transmission Date: 20141212
  Serious: Yes (Hospitalization)
  Sender: FDA-Public Use
  Company Number: 2392399

PATIENT
  Age: 62 Year
  Sex: Male

DRUGS (2)
  1. CYTARABINE [Suspect]
     Indication: MYELOFIBROSIS
     Route: 042
  2. IDARUBICIN [Suspect]
     Indication: MYELOFIBROSIS
     Route: 042

REACTIONS (8)
  - Hyperbilirubinaemia [None]
  - Pyrexia [None]
  - Abdominal pain [None]
  - Dyspnoea at rest [None]
  - Pain [None]
  - Appendicitis [None]
  - Candida infection [None]
  - Neutrophil count decreased [None]
